FAERS Safety Report 8851959 (Version 1)
Quarter: 2012Q4

REPORT INFORMATION
  Report Type: 
  Country: GB (occurrence: GB)
  Receive Date: 20121022
  Receipt Date: 20121022
  Transmission Date: 20130627
  Serious: Yes (Hospitalization)
  Sender: FDA-Public Use
  Company Number: GB-NOVOPROD-361773

PATIENT
  Age: 84 Year
  Sex: Male

DRUGS (1)
  1. VICTOZA [Suspect]
     Indication: DIABETES MELLITUS
     Dosage: UNK
     Route: 065
     Dates: start: 201207

REACTIONS (4)
  - Orthostatic hypertension [Unknown]
  - Cardiac disorder [Unknown]
  - Confusional state [Unknown]
  - Fall [Unknown]
